FAERS Safety Report 8558646-5 (Version None)
Quarter: 2012Q3

REPORT INFORMATION
  Report Type: 
  Country: None (occurrence: None)
  Receive Date: 20120801
  Receipt Date: 20120724
  Transmission Date: 20120928
  Serious: Yes (Other)
  Sender: FDA-Public Use
  Company Number: GB-UCBSA-062635

PATIENT
  Sex: Female

DRUGS (1)
  1. CIMZIA [Suspect]
     Dosage: 3 LOADING DOSES

REACTIONS (3)
  - BREAST TENDERNESS [None]
  - ORAL HERPES [None]
  - INCREASED APPETITE [None]
